FAERS Safety Report 12324684 (Version 2)
Quarter: 2016Q2

REPORT INFORMATION
  Report Type: Report from Study
  Country: CO (occurrence: CO)
  Receive Date: 20160502
  Receipt Date: 20160527
  Transmission Date: 20160815
  Serious: Yes (Death, Hospitalization)
  Sender: FDA-Public Use
  Company Number: CO-ABBVIE-16P-036-1618698-00

PATIENT
  Age: 83 Year
  Sex: Male
  Weight: 60 kg

DRUGS (1)
  1. ZEMPLAR [Suspect]
     Active Substance: PARICALCITOL
     Indication: SPINAL FRACTURE
     Route: 042
     Dates: start: 20131114, end: 20160212

REACTIONS (6)
  - Syncope [Fatal]
  - Fall [Not Recovered/Not Resolved]
  - General physical health deterioration [Fatal]
  - Pain [Fatal]
  - Pyrexia [Fatal]
  - Spinal fracture [Not Recovered/Not Resolved]

NARRATIVE: CASE EVENT DATE: 20160404
